FAERS Safety Report 17818985 (Version 1)
Quarter: 2020Q2

REPORT INFORMATION
  Report Type: Spontaneous
  Country: DK (occurrence: DK)
  Receive Date: 20200523
  Receipt Date: 20200523
  Transmission Date: 20200714
  Serious: Yes (Other)
  Sender: FDA-Public Use
  Company Number: DK-CLINIGEN GROUP PLC/ CLINIGEN HEALTHCARE LTD-DK-CLGN-20-0013039

PATIENT
  Age: 62 Year
  Sex: Female

DRUGS (5)
  1. EPIRUBICIN HYDROCHLORIDE. [Suspect]
     Active Substance: EPIRUBICIN HYDROCHLORIDE
     Indication: APOCRINE BREAST CARCINOMA
     Route: 042
     Dates: start: 20170804
  2. SAVENE [Suspect]
     Active Substance: DEXRAZOXANE
     Indication: ADMINISTRATION SITE EXTRAVASATION
     Route: 042
  3. PACLITAXEL. [Suspect]
     Active Substance: PACLITAXEL
     Indication: APOCRINE BREAST CARCINOMA
     Route: 042
     Dates: start: 20171023, end: 201712
  4. TRASTUZUMAB. [Suspect]
     Active Substance: TRASTUZUMAB
     Indication: APOCRINE BREAST CARCINOMA
     Dates: end: 201810
  5. CYCLOPHOSPHAMIDE. [Suspect]
     Active Substance: CYCLOPHOSPHAMIDE
     Indication: APOCRINE BREAST CARCINOMA
     Dates: start: 20170804

REACTIONS (25)
  - Eye haemorrhage [Unknown]
  - Vitreous detachment [Unknown]
  - Cold sweat [Unknown]
  - Pain in jaw [Unknown]
  - Mental impairment [Unknown]
  - Visual field defect [Unknown]
  - Cerebral infarction [Unknown]
  - Presyncope [Unknown]
  - Nausea [Unknown]
  - Diarrhoea [Unknown]
  - Vision blurred [Unknown]
  - Nail disorder [Unknown]
  - Eye pain [Unknown]
  - Tinnitus [Unknown]
  - Muscle spasms [Unknown]
  - Hot flush [Unknown]
  - Visual impairment [Unknown]
  - Neuropathy peripheral [Unknown]
  - Haematuria [Unknown]
  - Fatigue [Unknown]
  - Sensory disturbance [Unknown]
  - Palpitations [Unknown]
  - Cough [Unknown]
  - Headache [Unknown]
  - Dyspnoea [Unknown]

NARRATIVE: CASE EVENT DATE: 201708
